FAERS Safety Report 5793675-6 (Version None)
Quarter: 2008Q2

REPORT INFORMATION
  Report Type: 
  Country: None (occurrence: None)
  Receive Date: 20080627
  Receipt Date: 20080626
  Transmission Date: 20081010
  Serious: Yes (Hospitalization)
  Sender: FDA-Public Use
  Company Number: IT-BAYER-200810017GPV

PATIENT
  Age: 90 Year
  Sex: Female

DRUGS (1)
  1. ASPIRIN [Suspect]
     Indication: DRUG USE FOR UNKNOWN INDICATION
     Dosage: AS USED: (100 MG  UNIT DOSE: 100 MG
     Route: 048
     Dates: start: 20040101, end: 20071123

REACTIONS (5)
  - ANAEMIA [None]
  - FALL [None]
  - HAEMATEMESIS [None]
  - HAEMATOMA [None]
  - PRESYNCOPE [None]
